FAERS Safety Report 4449585-X (Version None)
Quarter: 2004Q3

REPORT INFORMATION
  Report Type: 
  Country: None (occurrence: None)
  Receive Date: 20040913
  Receipt Date: 20040831
  Transmission Date: 20050211
  Serious: Yes (Hospitalization)
  Sender: FDA-Public Use
  Company Number: HQWYE998903OCT03

PATIENT
  Age: 52 Year
  Sex: Male

DRUGS (10)
  1. RAPAMUNE [Suspect]
     Indication: PROPHYLAXIS AGAINST TRANSPLANT REJECTION
     Dosage: 5 MG 1X PER 1 DAY ORAL: 4 MG 1X PER 1 DAY : ^DOSE BEING GRADUALLY DECREASED^
     Route: 048
     Dates: start: 20030910, end: 20030901
  2. RAPAMUNE [Suspect]
     Indication: PROPHYLAXIS AGAINST TRANSPLANT REJECTION
     Dosage: 5 MG 1X PER 1 DAY ORAL: 4 MG 1X PER 1 DAY : ^DOSE BEING GRADUALLY DECREASED^
     Route: 048
     Dates: start: 20021101, end: 20030909
  3. RAPAMUNE [Suspect]
     Indication: PROPHYLAXIS AGAINST TRANSPLANT REJECTION
     Dosage: 5 MG 1X PER 1 DAY ORAL: 4 MG 1X PER 1 DAY : ^DOSE BEING GRADUALLY DECREASED^
     Route: 048
     Dates: start: 20030901, end: 20030923
  4. FERROUS SULFATE TAB [Concomitant]
  5. MONOCOR (BISOPROLOL) [Concomitant]
  6. RIVOTRIL (CLONAZEPAM) [Concomitant]
  7. PANTOLOC ^BYK MADAUS^ (PANTOPRAZOLE) [Concomitant]
  8. FOSAMAX [Concomitant]
  9. THIAMINE [Concomitant]
  10. VITAMIN B6 [Concomitant]

REACTIONS (14)
  - BIOPSY PERIPHERAL NERVE ABNORMAL [None]
  - CATARACT [None]
  - CHRONIC INFLAMMATORY DEMYELINATING POLYRADICULONEUROPATHY [None]
  - COLON CANCER [None]
  - GASTROINTESTINAL DISORDER [None]
  - GLAUCOMA [None]
  - INFECTION [None]
  - LYMPHOMA [None]
  - MUSCLE ATROPHY [None]
  - NUCLEAR MAGNETIC RESONANCE IMAGING BRAIN ABNORMAL [None]
  - PLATELET COUNT DECREASED [None]
  - POSITRON EMISSION TOMOGRAM ABNORMAL [None]
  - UVEITIS [None]
  - WHITE BLOOD CELL COUNT DECREASED [None]
